FAERS Safety Report 8161595-8 (Version None)
Quarter: 2012Q1

REPORT INFORMATION
  Report Type: 
  Country: None (occurrence: None)
  Receive Date: 20120224
  Receipt Date: 20120221
  Transmission Date: 20120608
  Serious: Yes (Life-Threatening)
  Sender: FDA-Public Use
  Company Number: US-BAYER-2011-093706

PATIENT
  Sex: Female
  Weight: 88.889 kg

DRUGS (8)
  1. IUD NOS [Concomitant]
  2. ALDACTONE [Concomitant]
  3. MERIDIA [Concomitant]
  4. HEPARIN [Concomitant]
  5. YASMIN [Suspect]
  6. DROSPIRENONE AND ETHINYL ESTRADIOL [Suspect]
  7. YAZ [Suspect]
  8. COUMADIN [Concomitant]

REACTIONS (12)
  - CHOLECYSTITIS [None]
  - PAIN [None]
  - ANXIETY [None]
  - PULMONARY EMBOLISM [None]
  - GENERAL PHYSICAL HEALTH DETERIORATION [None]
  - OEDEMA [None]
  - CARDIAC MURMUR [None]
  - INTERNAL INJURY [None]
  - PALPITATIONS [None]
  - GALLBLADDER DISORDER [None]
  - INJURY [None]
  - ANHEDONIA [None]
